FAERS Safety Report 8623886 (Version 4)
Quarter: 2012Q4

REPORT INFORMATION
  Report Type: 
  Country: NL (occurrence: NL)
  Receive Date: 20120620
  Receipt Date: 20121126
  Transmission Date: 20130627
  Serious: Yes (Other)
  Sender: FDA-Public Use
  Company Number: NL-PFIZER INC-2012143222

PATIENT
  Age: 69 Year
  Sex: Male

DRUGS (11)
  1. LIPITOR [Suspect]
     Dosage: UNK
  2. AVODART [Concomitant]
     Indication: ENLARGED PROSTATE
     Dosage: 0.5 mg, UNK
  3. SELOKEEN [Concomitant]
     Dosage: 200 mg, UNK
  4. MONO-CEDOCARD [Concomitant]
     Dosage: 100 mg, UNK
  5. ASCAL [Concomitant]
     Dosage: UNK
  6. OMEPRAZOL [Concomitant]
     Dosage: 20 mg, UNK
  7. SPIRIVA [Concomitant]
     Indication: COPD
     Dosage: 18 ug, UNK
  8. AERIUS [Concomitant]
     Dosage: 5 mg, as needed
  9. LASIX [Concomitant]
     Dosage: 40 mg, UNK
  10. SYMBICORT [Concomitant]
     Indication: COPD
     Dosage: UNK
  11. OMNIC [Concomitant]
     Indication: ENLARGED PROSTATE
     Dosage: UNK

REACTIONS (9)
  - Pharyngeal oedema [Recovering/Resolving]
  - Tongue oedema [Recovering/Resolving]
  - Face oedema [Recovering/Resolving]
  - Syncope [Not Recovered/Not Resolved]
  - Presyncope [Not Recovered/Not Resolved]
  - Nausea [Not Recovered/Not Resolved]
  - Cough [Not Recovered/Not Resolved]
  - Pruritus [Not Recovered/Not Resolved]
  - Constipation [Not Recovered/Not Resolved]
